FAERS Safety Report 6033081-2 (Version None)
Quarter: 2009Q1

REPORT INFORMATION
  Report Type: 
  Country: None (occurrence: None)
  Receive Date: 20090109
  Receipt Date: 20081230
  Transmission Date: 20090719
  Serious: Yes (Life-Threatening, Other)
  Sender: FDA-Public Use
  Company Number: DE-VALEANT-2008VX002647

PATIENT
  Sex: Male
  Weight: 100 kg

DRUGS (1)
  1. LIBRIUM [Suspect]
     Route: 048

REACTIONS (3)
  - INTENTIONAL OVERDOSE [None]
  - SOPOR [None]
  - SUICIDE ATTEMPT [None]
